FAERS Safety Report 10550244 (Version 2)
Quarter: 2014Q4

REPORT INFORMATION
  Report Type: Report from Study
  Country: US (occurrence: US)
  Receive Date: 20141028
  Receipt Date: 20141031
  Transmission Date: 20150529
  Serious: Yes (Death, Hospitalization)
  Sender: FDA-Public Use
  Company Number: US-ABBVIE-14K-163-1300280-00

PATIENT
  Age: 49 Year
  Sex: Female
  Weight: 195.22 kg

DRUGS (2)
  1. HUMIRA [Suspect]
     Active Substance: ADALIMUMAB
     Indication: RHEUMATOID ARTHRITIS
     Route: 065
     Dates: start: 2010, end: 201403
  2. HUMIRA [Suspect]
     Active Substance: ADALIMUMAB
     Indication: PSORIASIS

REACTIONS (6)
  - Asphyxia [Fatal]
  - Dyspnoea [Fatal]
  - Carbon dioxide increased [Fatal]
  - Brain injury [Fatal]
  - Cardiac arrest [Fatal]
  - Respiratory distress [Fatal]

NARRATIVE: CASE EVENT DATE: 201401
